FAERS Safety Report 11592620 (Version 1)
Quarter: 2015Q4

REPORT INFORMATION
  Report Type: Spontaneous
  Country: RW (occurrence: RW)
  Receive Date: 20151005
  Receipt Date: 20151005
  Transmission Date: 20160304
  Serious: Yes (Other)
  Sender: FDA-Public Use
  Company Number: RW-UNICHEM LABORATORIES LIMITED-UCM201509-000833

PATIENT
  Age: 51 Year
  Sex: Male

DRUGS (5)
  1. SPIRONOLACTONE. [Suspect]
     Active Substance: SPIRONOLACTONE
  2. HYDROCHLOROTHIAZIDE. [Suspect]
     Active Substance: HYDROCHLOROTHIAZIDE
  3. CARVEDILOL. [Suspect]
     Active Substance: CARVEDILOL
  4. LOSARTAN. [Suspect]
     Active Substance: LOSARTAN
  5. FUROSEMIDE. [Suspect]
     Active Substance: FUROSEMIDE

REACTIONS (5)
  - Gouty arthritis [Unknown]
  - Hyperuricaemia [Unknown]
  - Drug interaction [Unknown]
  - Acute kidney injury [Unknown]
  - Hyperkalaemia [Unknown]
